FAERS Safety Report 10902155 (Version 1)
Quarter: 2015Q1

REPORT INFORMATION
  Report Type: Spontaneous
  Country: IE (occurrence: IE)
  Receive Date: 20150310
  Receipt Date: 20150310
  Transmission Date: 20150721
  Serious: Yes (Death)
  Sender: FDA-Public Use
  Company Number: IE-PFIZER INC-2015084281

PATIENT
  Age: 55 Year
  Sex: Female

DRUGS (4)
  1. XANAX [Suspect]
     Active Substance: ALPRAZOLAM
     Dosage: 1 MG, 4X/DAY
  2. VALIUM [Interacting]
     Active Substance: DIAZEPAM
     Dosage: 10 MG, 4X/DAY
  3. PARAMOL-118 [Interacting]
     Active Substance: ACETAMINOPHEN\DIHYDROCODEINE BITARTRATE
     Dosage: 2 DF, 4X/DAY
  4. DALMANE [Interacting]
     Active Substance: FLURAZEPAM HYDROCHLORIDE
     Dosage: 30 MG, 1X/DAY AT NIGHT

REACTIONS (3)
  - Depressed level of consciousness [Fatal]
  - Drug interaction [Fatal]
  - Potentiating drug interaction [None]
